FAERS Safety Report 7214615-9 (Version None)
Quarter: 2011Q1

REPORT INFORMATION
  Report Type: 
  Country: None (occurrence: None)
  Receive Date: 20110105
  Receipt Date: 20110105
  Transmission Date: 20110831
  Serious: Yes (Other)
  Sender: FDA-Public Use
  Company Number: None

PATIENT
  Age: 31 Year
  Sex: Female
  Weight: 74.8435 kg

DRUGS (2)
  1. ACTEMRA [Suspect]
     Indication: RHEUMATOID ARTHRITIS
     Dosage: 600MG Q24HR IV
     Route: 042
     Dates: start: 20100624, end: 20101230
  2. ACTEMRA [Suspect]

REACTIONS (3)
  - UPPER RESPIRATORY TRACT INFECTION BACTERIAL [None]
  - NASOPHARYNGITIS [None]
  - NO THERAPEUTIC RESPONSE [None]
